FAERS Safety Report 8473481-4 (Version None)
Quarter: 2012Q2

REPORT INFORMATION
  Report Type: 
  Country: None (occurrence: None)
  Receive Date: 20120628
  Receipt Date: 20120625
  Transmission Date: 20120825
  Serious: Yes (Death)
  Sender: FDA-Public Use
  Company Number: US-AMGEN-USASP2012039383

PATIENT
  Sex: Female

DRUGS (2)
  1. NEUPOGEN [Suspect]
     Indication: OVARIAN CANCER
  2. NEULASTA [Suspect]
     Indication: OVARIAN CANCER

REACTIONS (1)
  - OVARIAN CANCER [None]
